FAERS Safety Report 5681751-8 (Version None)
Quarter: 2008Q1

REPORT INFORMATION
  Report Type: 
  Country: None (occurrence: None)
  Receive Date: 20080326
  Receipt Date: 20070308
  Transmission Date: 20080703
  Serious: No
  Sender: FDA-Public Use
  Company Number: US-BAYER-US-2007-008463

PATIENT
  Age: 31 Year
  Sex: Female
  Weight: 82 kg

DRUGS (4)
  1. MIRENA [Suspect]
     Indication: CONTRACEPTION
     Route: 015
     Dates: start: 20040601
  2. ALBUTEROL [Concomitant]
     Indication: ASTHMA
  3. NASACORT [Concomitant]
     Indication: SEASONAL ALLERGY
  4. ADVAIR DISKUS 100/50 [Concomitant]
     Indication: ASTHMA

REACTIONS (3)
  - METRORRHAGIA [None]
  - MIGRAINE [None]
  - VAGINAL HAEMORRHAGE [None]
